FAERS Safety Report 8022737-8 (Version None)
Quarter: 2012Q1

REPORT INFORMATION
  Report Type: 
  Country: None (occurrence: None)
  Receive Date: 20120104
  Receipt Date: 20120102
  Transmission Date: 20120608
  Serious: Yes (Hospitalization)
  Sender: FDA-Public Use
  Company Number: FR-ROCHE-1026938

PATIENT
  Sex: Female
  Weight: 61 kg

DRUGS (2)
  1. FOTEMUSTINE [Concomitant]
     Dates: start: 20111021, end: 20111028
  2. VEMURAFENIB [Suspect]
     Indication: METASTATIC MALIGNANT MELANOMA
     Route: 048
     Dates: start: 20111118, end: 20111126

REACTIONS (1)
  - LARGE INTESTINE PERFORATION [None]
